FAERS Safety Report 8485968-9 (Version None)
Quarter: 2012Q3

REPORT INFORMATION
  Report Type: 
  Country: None (occurrence: None)
  Receive Date: 20120703
  Receipt Date: 20120328
  Transmission Date: 20120928
  Serious: Yes (Other)
  Sender: FDA-Public Use
  Company Number: US-CELGENEUS-163-21880-12030074

PATIENT
  Sex: Female

DRUGS (3)
  1. DIGOXIN [Concomitant]
     Route: 065
  2. REVLIMID [Suspect]
     Dosage: 5 MILLIGRAM
     Route: 048
     Dates: start: 20120208, end: 20120228
  3. COREG [Concomitant]
     Route: 065

REACTIONS (2)
  - CONDUCTION DISORDER [None]
  - BLOOD PRESSURE ABNORMAL [None]
